FAERS Safety Report 9807664 (Version 7)
Quarter: 2016Q4

REPORT INFORMATION
  Report Type: Spontaneous
  Country: US (occurrence: US)
  Receive Date: 20140110
  Receipt Date: 20161106
  Transmission Date: 20170207
  Serious: Yes (Hospitalization, Disabling, Other)
  Sender: FDA-Public Use
  Company Number: US-009507513-1109USA02515

PATIENT
  Sex: Male
  Weight: 113.83 kg

DRUGS (1)
  1. PROPECIA [Suspect]
     Active Substance: FINASTERIDE
     Indication: ALOPECIA
     Dosage: 1 MG, QD
     Route: 048
     Dates: start: 20030116

REACTIONS (24)
  - Hypertension [Unknown]
  - Transaminases increased [Unknown]
  - Anxiety [Unknown]
  - Testicular pain [Unknown]
  - Confusional state [Unknown]
  - Fatigue [Unknown]
  - Dysphagia [Unknown]
  - Suicidal ideation [Unknown]
  - Emotional distress [Unknown]
  - Sexual dysfunction [Unknown]
  - Emotional distress [Unknown]
  - Blood testosterone decreased [Unknown]
  - Cerebrovascular accident [Not Recovered/Not Resolved]
  - Vertigo [Unknown]
  - Anxiety [Unknown]
  - Cough [Unknown]
  - Depression [Unknown]
  - Loss of libido [Unknown]
  - Dyspnoea [Unknown]
  - Hyperlipidaemia [Unknown]
  - Vocal cord disorder [Unknown]
  - Disturbance in attention [Unknown]
  - Acrochordon [Unknown]
  - Dysarthria [Unknown]

NARRATIVE: CASE EVENT DATE: 2005
